FAERS Safety Report 7474686-1 (Version None)
Quarter: 2011Q2

REPORT INFORMATION
  Report Type: 
  Country: None (occurrence: None)
  Receive Date: 20110505
  Receipt Date: 20110421
  Transmission Date: 20111010
  Serious: Yes (Other)
  Sender: FDA-Public Use
  Company Number: 031868

PATIENT
  Age: 19 Month
  Sex: Male

DRUGS (3)
  1. TOPIRAMATE [Concomitant]
  2. LACOSAMIDE [Suspect]
     Indication: ENCEPHALOPATHY
     Dosage: (25 MG ORINITIAL DOSE: 6MG/KG/D), (FINAL DOSE: 12MG/KG BODY WEIGHT; ADMINISTERED FOR  1 WEEK)
  3. LEVETIRACETAM [Concomitant]

REACTIONS (2)
  - STATUS EPILEPTICUS [None]
  - OFF LABEL USE [None]
